FAERS Safety Report 7820413-5 (Version None)
Quarter: 2011Q4

REPORT INFORMATION
  Report Type: 
  Country: None (occurrence: None)
  Receive Date: 20111018
  Receipt Date: 20110922
  Transmission Date: 20120403
  Serious: No
  Sender: FDA-Public Use
  Company Number: US-ROXANE LABORATORIES, INC.-2011-RO-01169RO

PATIENT
  Sex: Male

DRUGS (7)
  1. AMLODIPINE [Concomitant]
     Dosage: 10 MG
  2. QUINAPRIL [Concomitant]
     Dosage: 10 MG
  3. FLUTICASONE PROPIONATE [Suspect]
     Indication: NASAL CONGESTION
     Route: 055
  4. ASPIRIN [Concomitant]
     Dosage: 81 MG
  5. RANITIDINE [Concomitant]
     Dosage: 300 MG
  6. NIACIN [Concomitant]
     Dosage: 1000 MG
  7. ATENOLOL [Concomitant]
     Dosage: 50 MG

REACTIONS (2)
  - EPISTAXIS [None]
  - DRUG INEFFECTIVE [None]
